FAERS Safety Report 12470919 (Version 2)
Quarter: 2016Q2

REPORT INFORMATION
  Report Type: Report from Study
  Country: BR (occurrence: BR)
  Receive Date: 20160616
  Receipt Date: 20160629
  Transmission Date: 20160815
  Serious: Yes (Hospitalization)
  Sender: FDA-Public Use
  Company Number: PHHY2016BR082453

PATIENT
  Sex: Female
  Weight: 54 kg

DRUGS (3)
  1. ACIDO FOLICO//FOLIC ACID [Concomitant]
     Active Substance: FOLIC ACID
     Indication: MYELODYSPLASTIC SYNDROME
     Dosage: 1 DF, QD
     Route: 048
  2. EXJADE [Suspect]
     Active Substance: DEFERASIROX
     Indication: MYELODYSPLASTIC SYNDROME
     Dosage: 20 MG/KG (2 DF OF 500 MG), QD
     Route: 048
  3. CRONOBE [Concomitant]
     Active Substance: COBAMAMIDE
     Indication: MYELODYSPLASTIC SYNDROME
     Dosage: 1 DF, EVERY 15 DAYS
     Route: 030

REACTIONS (2)
  - Dyspnoea [Recovered/Resolved]
  - Haemoglobin decreased [Recovered/Resolved]
